FAERS Safety Report 5333909-5 (Version None)
Quarter: 2007Q2

REPORT INFORMATION
  Report Type: 
  Country: None (occurrence: None)
  Receive Date: 20070524
  Receipt Date: 20070516
  Transmission Date: 20071010
  Serious: Yes (Hospitalization, Other)
  Sender: FDA-Public Use
  Company Number: US-ELI_LILLY_AND_COMPANY-US200705000435

PATIENT
  Sex: Female

DRUGS (14)
  1. FORTEO [Suspect]
     Indication: OSTEOPOROSIS
     Dosage: 20 UG, DAILY (1/D)
     Dates: start: 20060501
  2. ENALAPRIL [Concomitant]
  3. LASIX [Concomitant]
  4. NITROSTAT [Concomitant]
     Dosage: UNK, AS NEEDED
  5. REQUIP [Concomitant]
  6. COUMADIN [Concomitant]
  7. AMBIEN [Concomitant]
  8. PERCOCET [Concomitant]
  9. PROZAC [Concomitant]
  10. COREG [Concomitant]
     Dosage: 3.75 MG, UNK
  11. LYRICA [Concomitant]
  12. POTASSIUM ACETATE [Concomitant]
  13. PRILOSEC [Concomitant]
  14. STOOL SOFTENER [Concomitant]

REACTIONS (9)
  - ANKLE FRACTURE [None]
  - BONE DISORDER [None]
  - CARDIAC FAILURE CONGESTIVE [None]
  - CHEST INJURY [None]
  - FALL [None]
  - LIMB CRUSHING INJURY [None]
  - LOWER LIMB FRACTURE [None]
  - TRAUMATIC ARTHROPATHY [None]
  - WRIST FRACTURE [None]
